FAERS Safety Report 6724136-5 (Version None)
Quarter: 2010Q2

REPORT INFORMATION
  Report Type: 
  Country: None (occurrence: None)
  Receive Date: 20100513
  Receipt Date: 20100505
  Transmission Date: 20101027
  Serious: Yes (Hospitalization)
  Sender: FDA-Public Use
  Company Number: ZA-ROCHE-701539

PATIENT
  Sex: Male
  Weight: 71 kg

DRUGS (1)
  1. METHOXY POLYETHYLENE GLYCOL-EPOETIN BETA [Suspect]
     Route: 042
     Dates: start: 20090929

REACTIONS (3)
  - CHEST PAIN [None]
  - SEPSIS [None]
  - VASCULAR ACCESS COMPLICATION [None]
